FAERS Safety Report 20503143 (Version 1)
Quarter: 2022Q1

REPORT INFORMATION
  Report Type: Spontaneous
  Country: US (occurrence: US)
  Receive Date: 20220222
  Receipt Date: 20220222
  Transmission Date: 20220424
  Serious: Yes (Other)
  Sender: FDA-Public Use
  Company Number: US-INCYTE CORPORATION-2022IN001645

PATIENT

DRUGS (1)
  1. JAKAFI [Suspect]
     Active Substance: RUXOLITINIB
     Dosage: UNK
     Route: 065

REACTIONS (9)
  - Central nervous system infection [Unknown]
  - Cerebral hypoperfusion [Unknown]
  - Focal dyscognitive seizures [Unknown]
  - Muscle spasticity [Unknown]
  - White blood cell count decreased [Unknown]
  - Insomnia [Unknown]
  - Tension headache [Unknown]
  - Autonomic nervous system imbalance [Unknown]
  - Fatigue [Unknown]
